FAERS Safety Report 6345105-3 (Version None)
Quarter: 2009Q3

REPORT INFORMATION
  Report Type: 
  Country: None (occurrence: None)
  Receive Date: 20090909
  Receipt Date: 20070510
  Transmission Date: 20100115
  Serious: Yes (Other)
  Sender: FDA-Public Use
  Company Number: US-ASTRAZENECA-2006UW27744

PATIENT
  Age: 36 Year
  Sex: Male
  Weight: 90.7 kg

DRUGS (10)
  1. SEROQUEL [Suspect]
     Indication: SCHIZOPHRENIA
     Dosage: 100, 600, 1000 MG
     Route: 048
     Dates: start: 19980101, end: 20060825
  2. SEROQUEL [Suspect]
     Route: 048
     Dates: end: 20060301
  3. HALDOL [Concomitant]
  4. ESKALITH [Concomitant]
     Route: 048
     Dates: start: 19980717
  5. ZOLOFT [Concomitant]
     Route: 048
     Dates: start: 19980904
  6. THORAZINE [Concomitant]
     Route: 048
     Dates: start: 19990430
  7. LISINOPRIL [Concomitant]
     Indication: HYPERTENSION
     Route: 048
     Dates: start: 20041117
  8. RANITIDINE [Concomitant]
     Indication: GASTROOESOPHAGEAL REFLUX DISEASE
     Route: 048
     Dates: start: 20041117
  9. GEMFIBROZIL [Concomitant]
     Indication: HYPERTRIGLYCERIDAEMIA
     Route: 048
     Dates: start: 20041117
  10. TYLENOL (CAPLET) [Concomitant]
     Indication: ARTHRALGIA
     Route: 048
     Dates: start: 20030312

REACTIONS (5)
  - DIABETES MELLITUS [None]
  - DIABETES MELLITUS INADEQUATE CONTROL [None]
  - DIABETIC NEUROPATHY [None]
  - HYPERCHOLESTEROLAEMIA [None]
  - PANCREATITIS [None]
